FAERS Safety Report 9347086 (Version 1)
Quarter: 2013Q2

REPORT INFORMATION
  Report Type: Spontaneous
  Country: GB (occurrence: GB)
  Receive Date: 20130613
  Receipt Date: 20130613
  Transmission Date: 20140414
  Serious: Yes (Hospitalization)
  Sender: FDA-Public Use
  Company Number: GB-GLAXOSMITHKLINE-B0897677A

PATIENT
  Age: 62 Year
  Sex: Female

DRUGS (2)
  1. LAMICTAL [Suspect]
     Indication: EPILEPSY
     Route: 065
  2. ESTRADIOL [Concomitant]

REACTIONS (5)
  - Delirium [Unknown]
  - Encephalitis viral [Unknown]
  - Convulsion [Unknown]
  - Hallucination, visual [Unknown]
  - Treatment noncompliance [Unknown]
